FAERS Safety Report 21197078 (Version 1)
Quarter: 2022Q3

REPORT INFORMATION
  Report Type: Spontaneous
  Country: ES (occurrence: ES)
  Receive Date: 20220810
  Receipt Date: 20220810
  Transmission Date: 20221026
  Serious: Yes (Hospitalization, Other)
  Sender: FDA-Public Use
  Company Number: None

PATIENT
  Age: 59 Year
  Sex: Male

DRUGS (6)
  1. RITUXIMAB [Suspect]
     Active Substance: RITUXIMAB
     Indication: Non-Hodgkin^s lymphoma
     Dosage: 1400 MG, CYCLIC (EVERY 2 MONTHS)
     Route: 058
     Dates: start: 20210419
  2. ASPIRIN\ATORVASTATIN CALCIUM\RAMIPRIL [Concomitant]
     Active Substance: ASPIRIN\ATORVASTATIN CALCIUM\RAMIPRIL
     Indication: Acute myocardial infarction
     Dosage: 1 DF
     Route: 048
     Dates: start: 20180506
  3. ACICLOVIR CINFA [Concomitant]
     Indication: Herpes zoster
     Dosage: 800 MG, EVERY 4 HRS
     Route: 048
     Dates: start: 20201113
  4. OMEPRAZOL CINFA [Concomitant]
     Dosage: 20 MG
     Route: 048
     Dates: start: 20130111
  5. BISOPROLOL FUMARATE [Concomitant]
     Active Substance: BISOPROLOL FUMARATE
     Indication: Acute myocardial infarction
     Dosage: 0.25 MG
     Route: 048
     Dates: start: 20180507
  6. CETIRIZINA NORMON [Concomitant]
     Indication: Rhinitis allergic
     Dosage: 10 MG
     Route: 048
     Dates: start: 20090822

REACTIONS (1)
  - Febrile neutropenia [Recovered/Resolved]

NARRATIVE: CASE EVENT DATE: 20210618
